FAERS Safety Report 10103153 (Version 1)
Quarter: 2014Q2

REPORT INFORMATION
  Report Type: Spontaneous
  Country: US (occurrence: US)
  Receive Date: 20140424
  Receipt Date: 20140424
  Transmission Date: 20141212
  Serious: Yes (Hospitalization)
  Sender: FDA-Public Use
  Company Number: US-GLAXOSMITHKLINE-A1070648A

PATIENT
  Age: 32 Year
  Sex: Female

DRUGS (1)
  1. FLOVENT [Suspect]
     Indication: PRODUCT USED FOR UNKNOWN INDICATION
     Dosage: 110MCG UNKNOWN
     Route: 055

REACTIONS (2)
  - Investigation [Unknown]
  - Impaired work ability [Unknown]
